FAERS Safety Report 22145651 (Version 2)
Quarter: 2023Q1

REPORT INFORMATION
  Report Type: Spontaneous
  Country: US (occurrence: US)
  Receive Date: 20230328
  Receipt Date: 20230330
  Transmission Date: 20230418
  Serious: No
  Sender: FDA-Public Use
  Company Number: US-002147023-NVSC2023US066692

PATIENT
  Sex: Female

DRUGS (2)
  1. COSENTYX [Suspect]
     Active Substance: SECUKINUMAB
     Indication: Arthritis
     Dosage: 300 MG
     Route: 065
  2. HUMIRA [Suspect]
     Active Substance: ADALIMUMAB
     Indication: Arthritis
     Dosage: UNK
     Route: 065

REACTIONS (9)
  - Injection site pain [Unknown]
  - Dysuria [Unknown]
  - Dizziness [Unknown]
  - Scratch [Unknown]
  - Erythema [Unknown]
  - Pain of skin [Unknown]
  - Sinusitis [Unknown]
  - Incorrect dose administered [Unknown]
  - Product use in unapproved indication [Unknown]
